FAERS Safety Report 19497217 (Version 1)
Quarter: 2021Q3

REPORT INFORMATION
  Report Type: Spontaneous
  Country: US (occurrence: US)
  Receive Date: 20210706
  Receipt Date: 20210706
  Transmission Date: 20211014
  Serious: Yes (Hospitalization, Other)
  Sender: FDA-Public Use
  Company Number: US-AMNEAL PHARMACEUTICALS-2021-AMRX-02628

PATIENT
  Age: 56 Year
  Sex: Male

DRUGS (2)
  1. METHITEST [Suspect]
     Active Substance: METHYLTESTOSTERONE
     Dosage: UNK
     Route: 061
  2. METHITEST [Suspect]
     Active Substance: METHYLTESTOSTERONE
     Indication: TRANSGENDER HORMONAL THERAPY
     Dosage: UNK
     Route: 048

REACTIONS (1)
  - Renal artery fibromuscular dysplasia [Recovered/Resolved]
